FAERS Safety Report 4368291-3 (Version None)
Quarter: 2004Q2

REPORT INFORMATION
  Report Type: 
  Country: None (occurrence: None)
  Receive Date: 20040525
  Receipt Date: 20040513
  Transmission Date: 20050107
  Serious: Yes (Hospitalization)
  Sender: FDA-Public Use
  Company Number: HQWYE002719MAY04

PATIENT
  Sex: Female

DRUGS (1)
  1. PREMARIN [Suspect]
     Dates: start: 19930101, end: 20030701

REACTIONS (2)
  - METASTASES TO LIVER [None]
  - OVARIAN CANCER METASTATIC [None]
